FAERS Safety Report 20445964 (Version 1)
Quarter: 2022Q1

REPORT INFORMATION
  Report Type: Spontaneous
  Country: CA (occurrence: CA)
  Receive Date: 20220208
  Receipt Date: 20220208
  Transmission Date: 20220423
  Serious: Yes (Hospitalization, Other)
  Sender: FDA-Public Use
  Company Number: CA-PFIZER INC-202200213754

PATIENT
  Age: 58 Year
  Sex: Female

DRUGS (6)
  1. XELJANZ [Suspect]
     Active Substance: TOFACITINIB CITRATE
     Indication: Rheumatoid arthritis
     Dosage: 5 MG, 2X/DAY
     Route: 048
     Dates: start: 20161104
  2. NAPROXEN [Concomitant]
     Active Substance: NAPROXEN
     Dosage: 1 DF
     Route: 065
  3. PREDNISONE [Concomitant]
     Active Substance: PREDNISONE
     Dosage: 1 DF
     Route: 065
  4. PREGABALIN [Concomitant]
     Active Substance: PREGABALIN
     Dosage: 1 DF
     Route: 065
  5. SPIRONOLACTONE [Concomitant]
     Active Substance: SPIRONOLACTONE
     Dosage: 1 DF
     Route: 065
  6. SULFASALAZINE [Concomitant]
     Active Substance: SULFASALAZINE
     Indication: Rheumatoid arthritis
     Dosage: 500 MG, 2X/DAY
     Route: 065
     Dates: start: 201508

REACTIONS (3)
  - Hip fracture [Unknown]
  - Scapula fracture [Unknown]
  - Fall [Unknown]

NARRATIVE: CASE EVENT DATE: 20220119
